FAERS Safety Report 5986985-0 (Version None)
Quarter: 2008Q4

REPORT INFORMATION
  Report Type: 
  Country: None (occurrence: None)
  Receive Date: 20081209
  Receipt Date: 20081128
  Transmission Date: 20090506
  Serious: Yes (Death)
  Sender: FDA-Public Use
  Company Number: A0749505A

PATIENT
  Age: 78 Year
  Sex: Male
  Weight: 59 kg

DRUGS (3)
  1. ROSIGLITAZONE [Suspect]
     Indication: DEMENTIA ALZHEIMER'S TYPE
     Dosage: 8MG PER DAY
     Route: 048
     Dates: start: 20080121
  2. EXELON [Concomitant]
     Indication: DEMENTIA ALZHEIMER'S TYPE
     Dosage: 6MG PER DAY
     Route: 048
     Dates: start: 20070701
  3. CENTRUM [Concomitant]
     Dosage: 1TAB PER DAY
     Route: 048

REACTIONS (4)
  - COUGH [None]
  - DEATH [None]
  - PRODUCTIVE COUGH [None]
  - PYREXIA [None]
